FAERS Safety Report 9233589 (Version 1)
Quarter: 2013Q2

REPORT INFORMATION
  Report Type: Spontaneous
  Country: US (occurrence: US)
  Receive Date: 20130416
  Receipt Date: 20130416
  Transmission Date: 20140414
  Serious: No
  Sender: FDA-Public Use
  Company Number: US-BANPHARM-20120435

PATIENT
  Age: 57 Year
  Sex: Female
  Weight: 86.18 kg

DRUGS (10)
  1. ALEVE LIQUID GELS 220MG [Suspect]
     Dosage: 2 DF, BID,
     Route: 048
     Dates: start: 201205
  2. SYNTHROID [Concomitant]
  3. CYTOMEL [Concomitant]
  4. METFORMIN [Concomitant]
  5. ESTROGEN [Concomitant]
  6. VIVELLE [Concomitant]
  7. VALACYCLOVIR [Concomitant]
  8. MULTI VITAMIN [Concomitant]
  9. VITAMIN C [Concomitant]
  10. VITAMIN D [Concomitant]

REACTIONS (3)
  - Headache [Not Recovered/Not Resolved]
  - Incorrect dose administered [Unknown]
  - Incorrect drug administration duration [Unknown]
